FAERS Safety Report 7235218-6 (Version None)
Quarter: 2011Q1

REPORT INFORMATION
  Report Type: 
  Country: None (occurrence: None)
  Receive Date: 20110120
  Receipt Date: 20110112
  Transmission Date: 20110831
  Serious: Yes (Life-Threatening)
  Sender: FDA-Public Use
  Company Number: US-SHIONOGI USA, INC-2011000002

PATIENT

DRUGS (1)
  1. EPINEPHRINE [Suspect]
     Indication: LATEX ALLERGY
     Dosage: UNK
     Dates: start: 20110108, end: 20110108

REACTIONS (2)
  - DEVICE MALFUNCTION [None]
  - PRODUCT QUALITY ISSUE [None]
